FAERS Safety Report 6027541-8 (Version None)
Quarter: 2009Q1

REPORT INFORMATION
  Report Type: 
  Country: None (occurrence: None)
  Receive Date: 20090105
  Receipt Date: 20081027
  Transmission Date: 20090719
  Serious: No
  Sender: FDA-Public Use
  Company Number: US-BAYER-200814209BCC

PATIENT
  Age: 69 Year
  Sex: Female
  Weight: 120 kg

DRUGS (16)
  1. ALEVE (CAPLET) [Suspect]
     Indication: BACK PAIN
     Dosage: TOTAL DAILY DOSE: 880 MG  UNIT DOSE: 220 MG
     Route: 048
     Dates: start: 20080501
  2. ALEVE [Suspect]
     Indication: BACK PAIN
     Dosage: TOTAL DAILY DOSE: 880 MG  UNIT DOSE: 220 MG
     Route: 048
     Dates: start: 20080301
  3. ALEVE [Suspect]
     Indication: BACK PAIN
     Dosage: TOTAL DAILY DOSE: 880 MG  UNIT DOSE: 220 MG
     Route: 048
     Dates: start: 20080201, end: 20080301
  4. ASPIRIN [Concomitant]
  5. METOPROLOL [Concomitant]
  6. PLAVIX [Concomitant]
  7. NORVASC [Concomitant]
  8. PROTONIX [Concomitant]
  9. ZETIA [Concomitant]
  10. CRESTOR [Concomitant]
  11. EVISTA [Concomitant]
  12. CELEBREX [Concomitant]
  13. ISOSORBIDE MONONITRATE [Concomitant]
  14. KLOR-CON [Concomitant]
  15. FUROSEMIDE [Concomitant]
  16. POTASSIUM CHLORIDE [Concomitant]

REACTIONS (1)
  - DYSPEPSIA [None]
